FAERS Safety Report 6896805-8 (Version None)
Quarter: 2010Q3

REPORT INFORMATION
  Report Type: 
  Country: None (occurrence: None)
  Receive Date: 20100802
  Receipt Date: 20070130
  Transmission Date: 20110219
  Serious: Yes (Other)
  Sender: FDA-Public Use
  Company Number: US-PFIZER INC-2007009210

PATIENT
  Sex: Female
  Weight: 92.5 kg

DRUGS (4)
  1. LYRICA [Suspect]
     Indication: FIBROMYALGIA
     Route: 048
     Dates: start: 20061106
  2. CORTISONE [Concomitant]
  3. PREDNISONE TAB [Concomitant]
  4. ADVIL LIQUI-GELS [Concomitant]

REACTIONS (8)
  - DIARRHOEA [None]
  - DISTURBANCE IN ATTENTION [None]
  - DIZZINESS [None]
  - INSOMNIA [None]
  - POOR QUALITY SLEEP [None]
  - RASH GENERALISED [None]
  - VISION BLURRED [None]
  - WEIGHT INCREASED [None]
